FAERS Safety Report 20908837 (Version 1)
Quarter: 2022Q2

REPORT INFORMATION
  Report Type: Spontaneous
  Country: US (occurrence: US)
  Receive Date: 20220603
  Receipt Date: 20220603
  Transmission Date: 20220720
  Serious: No
  Sender: FDA-Public Use
  Company Number: US-TEVA-2022-US-2036464

PATIENT
  Age: 33 Year
  Sex: Female

DRUGS (1)
  1. ADDERALL [Suspect]
     Active Substance: AMPHETAMINE ASPARTATE\AMPHETAMINE SULFATE\DEXTROAMPHETAMINE SACCHARATE\DEXTROAMPHETAMINE SULFATE
     Indication: Attention deficit hyperactivity disorder
     Dosage: 30 MILLIGRAM DAILY;
     Dates: start: 20220420, end: 20220421

REACTIONS (8)
  - Drug hypersensitivity [Recovered/Resolved]
  - Rash erythematous [Recovered/Resolved]
  - Urticaria [Recovered/Resolved]
  - Dyspnoea [Recovered/Resolved]
  - Heart rate increased [Recovered/Resolved]
  - Insomnia [Recovered/Resolved]
  - Anxiety [Recovered/Resolved]
  - Diarrhoea [Recovered/Resolved]

NARRATIVE: CASE EVENT DATE: 20220420
